FAERS Safety Report 17556880 (Version 1)
Quarter: 2020Q1

REPORT INFORMATION
  Report Type: Report from Study
  Country: ES (occurrence: ES)
  Receive Date: 20200318
  Receipt Date: 20200318
  Transmission Date: 20200409
  Serious: Yes (Other)
  Sender: FDA-Public Use
  Company Number: ES-MYLANLABS-2020M1027503

PATIENT
  Age: 89 Year
  Sex: Male

DRUGS (12)
  1. ALDACTONE [Suspect]
     Active Substance: SPIRONOLACTONE
     Indication: CARDIAC FAILURE
  2. OMEPRAZOLE. [Concomitant]
     Active Substance: OMEPRAZOLE
     Dosage: UNK
  3. EMCONCOR COR [Concomitant]
     Active Substance: BISOPROLOL
     Dosage: UNK, 28 TABLETS
  4. CAPENON [Suspect]
     Active Substance: AMLODIPINE BESYLATE\OLMESARTAN MEDOXOMIL
     Indication: HYPERTENSION
  5. FUROSEMIDE. [Suspect]
     Active Substance: FUROSEMIDE
     Indication: HYPERTENSION
     Dosage: 40 MILLIGRAM, QD
     Route: 048
     Dates: start: 20180213, end: 20190509
  6. FUROSEMIDE. [Suspect]
     Active Substance: FUROSEMIDE
     Indication: CARDIAC FAILURE
  7. ALDACTONE [Suspect]
     Active Substance: SPIRONOLACTONE
     Indication: HYPERTENSION
     Dosage: 25 MILLIGRAM, QD
     Route: 048
     Dates: start: 20190215, end: 20190509
  8. ALIPZA [Concomitant]
     Active Substance: PITAVASTATIN
     Dosage: UNK, 28 TABLETS
  9. VESOMNI [Concomitant]
     Active Substance: SOLIFENACIN\TAMSULOSIN
     Dosage: UNK
  10. ADIRO [Concomitant]
     Active Substance: ASPIRIN
     Dosage: UNK, 30 TABLETS
  11. CAPENON [Suspect]
     Active Substance: AMLODIPINE BESYLATE\OLMESARTAN MEDOXOMIL
     Indication: CARDIAC FAILURE
     Dosage: 1 DOSAGE FORM, QD
     Route: 048
     Dates: start: 20131007, end: 20190509
  12. METFORMIN [Concomitant]
     Active Substance: METFORMIN HYDROCHLORIDE
     Dosage: UNK, 56 TABLETS

REACTIONS (3)
  - Renal failure [Recovering/Resolving]
  - Hyperkalaemia [Recovering/Resolving]
  - Hyponatraemia [Recovering/Resolving]

NARRATIVE: CASE EVENT DATE: 2019
